FAERS Safety Report 19077011 (Version 1)
Quarter: 2021Q1

REPORT INFORMATION
  Report Type: Spontaneous
  Country: US (occurrence: US)
  Receive Date: 20210331
  Receipt Date: 20210331
  Transmission Date: 20210420
  Serious: No
  Sender: FDA-Public Use
  Company Number: US-HIKMA PHARMACEUTICALS USA INC.-US-H14001-20-02819

PATIENT
  Sex: Female
  Weight: 117.03 kg

DRUGS (4)
  1. NALBUPHINE [Concomitant]
     Active Substance: NALBUPHINE
     Route: 058
  2. NALBUPHINE [Concomitant]
     Active Substance: NALBUPHINE
     Route: 065
  3. BUTORPHANOL TARTARATE [Suspect]
     Active Substance: BUTORPHANOL
     Indication: PRODUCT USED FOR UNKNOWN INDICATION
     Route: 065
  4. NALBUPHINE [Concomitant]
     Active Substance: NALBUPHINE
     Indication: MIGRAINE
     Route: 058

REACTIONS (3)
  - Mood altered [Unknown]
  - Expired product administered [Unknown]
  - Drug ineffective [Unknown]
